FAERS Safety Report 6153812-0 (Version None)
Quarter: 2009Q2

REPORT INFORMATION
  Report Type: 
  Country: None (occurrence: None)
  Receive Date: 20090414
  Receipt Date: 20071015
  Transmission Date: 20091009
  Serious: Yes (Hospitalization)
  Sender: FDA-Public Use
  Company Number: US-ASTRAZENECA-2006UW22206

PATIENT
  Age: 10142 Day
  Sex: Male
  Weight: 136.1 kg

DRUGS (14)
  1. SEROQUEL [Suspect]
     Indication: DEPRESSION
     Dosage: 100 MG - 1200 MG
     Route: 048
     Dates: start: 20010101
  2. SEROQUEL [Suspect]
     Indication: PSYCHOTIC DISORDER
     Dosage: 100 MG - 1200 MG
     Route: 048
     Dates: start: 20010101
  3. GEODON [Concomitant]
  4. KLONOPIN [Concomitant]
  5. LODINE [Concomitant]
  6. ROBAXIN [Concomitant]
  7. PROTONIX [Concomitant]
  8. LASIX [Concomitant]
  9. VISTARIL [Concomitant]
  10. MEPARGAN [Concomitant]
  11. ACIPHEX [Concomitant]
  12. NAPROSYN [Concomitant]
  13. RISPERDAL [Concomitant]
  14. ZYPREXA [Concomitant]

REACTIONS (21)
  - ASTHMA [None]
  - BACK PAIN [None]
  - BURNS FIRST DEGREE [None]
  - CANDIDIASIS [None]
  - CONTUSION [None]
  - COUGH [None]
  - DIABETES MELLITUS [None]
  - EAR PAIN [None]
  - ERYTHEMA [None]
  - FATIGUE [None]
  - HEAD INJURY [None]
  - HEADACHE [None]
  - INFECTION [None]
  - MUSCULOSKELETAL PAIN [None]
  - ORAL DISORDER [None]
  - OROPHARYNGEAL PAIN [None]
  - PNEUMONIA [None]
  - RASH GENERALISED [None]
  - RESPIRATORY TRACT CONGESTION [None]
  - SINUSITIS [None]
  - WOUND [None]
